FAERS Safety Report 11604987 (Version 2)
Quarter: 2015Q4

REPORT INFORMATION
  Report Type: Report from Study
  Country: US (occurrence: US)
  Receive Date: 20151007
  Receipt Date: 20151215
  Transmission Date: 20160304
  Serious: Yes (Other)
  Sender: FDA-Public Use
  Company Number: US-PFIZER INC-2015326753

PATIENT
  Age: 70 Year
  Sex: Male

DRUGS (22)
  1. RITUXIMAB [Suspect]
     Active Substance: RITUXIMAB
     Dosage: CYCLE 1: IV 375MG/M2 ON DAYS 2 AND 8; CYCLE 2: IV 375MG/M2 ON DAYS 2 AND 7, CYCLIC
     Route: 042
     Dates: start: 20141206, end: 20150112
  2. VINCRISTINE [Suspect]
     Active Substance: VINCRISTINE
     Dosage: CYCLE 1: IV 2MG ON DAYS 1 (DAY 8 DOSE HELD DUE TO ELEVATED BILI), CYCLIC
     Route: 042
     Dates: start: 20141205, end: 20150126
  3. ASPIRIN. [Concomitant]
     Active Substance: ASPIRIN
     Dosage: 81 MG (1 TABLET), QD
     Route: 048
  4. LANTUS [Concomitant]
     Active Substance: INSULIN GLARGINE
     Dosage: 20 UNITS 1 INJECTION, QD
     Route: 058
  5. INSULIN REGULAR [Concomitant]
     Active Substance: INSULIN NOS
     Dosage: 100 UNITS/PER CUBIC CENTIMETERS 1 INJECTION, TID
     Route: 058
  6. SPIRONOLACTONE. [Concomitant]
     Active Substance: SPIRONOLACTONE
     Dosage: 25 MG 1 TABLET, QD
     Route: 048
  7. CYCLOPHOSPHAMIDE. [Suspect]
     Active Substance: CYCLOPHOSPHAMIDE
     Dosage: 150MG/M2 Q12 HOURS ON DAYS 1-4
     Route: 042
     Dates: start: 20141205, end: 20150126
  8. METHOTREXATE [Suspect]
     Active Substance: METHOTREXATE
     Dosage: 200MG/M2 OVER 22 HOURS ON DAY
     Route: 042
     Dates: start: 20150106, end: 20150108
  9. LASIX [Concomitant]
     Active Substance: FUROSEMIDE
     Dosage: 40 MG, HALF TABLET QD
     Route: 048
  10. PROTONIX [Concomitant]
     Active Substance: PANTOPRAZOLE SODIUM
     Dosage: 40 MG 1 TABLET, QD
     Route: 048
  11. FLOMAX [Concomitant]
     Active Substance: TAMSULOSIN HYDROCHLORIDE
     Dosage: UNK
  12. METHYLPREDNISOLONE SODIUM SUCCINATE. [Suspect]
     Active Substance: METHYLPREDNISOLONE SODIUM SUCCINATE
     Dosage: 40MG EVERY 12 HOURS ON DAYS 1-3 (CYCLE 2)
     Route: 042
     Dates: start: 20150106, end: 20150109
  13. MESNA. [Suspect]
     Active Substance: MESNA
     Dosage: CYCLE 1: IV 300MG/M2 CONTINUOUS INFUSION DAYS 1-3, CYCLIC
     Route: 042
     Dates: start: 20141205, end: 20150126
  14. LEXAPRO [Concomitant]
     Active Substance: ESCITALOPRAM OXALATE
     Dosage: 10 MG 1 TABLET, QD
     Route: 048
  15. INOTUZUMAB OZOGAMICIN [Suspect]
     Active Substance: INOTUZUMAB OZOGAMICIN
     Dosage: 1 MG/M2, CYCLIC ON CYCLE 2 DAY 3
     Route: 042
     Dates: start: 20150109, end: 20150109
  16. POTASSIUM CHLORIDE. [Concomitant]
     Active Substance: POTASSIUM CHLORIDE
     Dosage: 20 MEQ 15 CC, 2X/DAY (BID)
     Route: 048
  17. CYTARABINE. [Suspect]
     Active Substance: CYTARABINE
     Dosage: 0.5 MG/M2, EVERY 12 HOURS ON DAYS 2 AND 3
     Route: 042
     Dates: start: 20150107, end: 20150110
  18. ALBUTEROL W/IPRATROPIUM [Concomitant]
     Active Substance: ALBUTEROL\IPRATROPIUM
     Indication: DYSPNOEA
     Dosage: 3 CUBIC CENTIMETERS INHALATION, BID
     Route: 055
  19. INOTUZUMAB OZOGAMICIN [Suspect]
     Active Substance: INOTUZUMAB OZOGAMICIN
     Dosage: 1.8MG/M2 C1 DAY 3
     Route: 042
     Dates: start: 20141207, end: 20141207
  20. CYTARABINE. [Suspect]
     Active Substance: CYTARABINE
     Dosage: 100MG ON CYCLE 1 DAY 7 (CYCLE 2 DAY 21)
     Route: 037
     Dates: start: 20141205, end: 20150126
  21. METHOTREXATE [Suspect]
     Active Substance: METHOTREXATE
     Dosage: 12MG CYCLE 1 DAY 1 AND CYCLE 2 DAY 2
     Route: 037
     Dates: start: 20141205, end: 20150107
  22. METHOTREXATE [Suspect]
     Active Substance: METHOTREXATE
     Dosage: 50 MG/M2 IV OVER 2 HOURS ON CYCLE 2 DAY 1
     Route: 042
     Dates: start: 20150106, end: 20150106

REACTIONS (1)
  - Venoocclusive liver disease [Unknown]

NARRATIVE: CASE EVENT DATE: 20150318
